FAERS Safety Report 9820038 (Version 1)
Quarter: 2014Q1

REPORT INFORMATION
  Report Type: Spontaneous
  Country: US (occurrence: None)
  Receive Date: 20140113
  Receipt Date: 20140113
  Transmission Date: 20141002
  Serious: No
  Sender: FDA-Public Use
  Company Number: None

PATIENT
  Age: 39 Year
  Sex: Male
  Weight: 85.28 kg

DRUGS (2)
  1. NIACIN ER/SIMVASTATIN [Suspect]
     Indication: BLOOD TRIGLYCERIDES INCREASED
     Dosage: 2 PILLS
     Route: 048
     Dates: start: 20131010, end: 20140112
  2. NIACIN ER/SIMVASTATIN [Suspect]
     Indication: HIGH DENSITY LIPOPROTEIN DECREASED
     Dosage: 2 PILLS
     Route: 048
     Dates: start: 20131010, end: 20140112

REACTIONS (4)
  - Flushing [None]
  - Skin burning sensation [None]
  - Paraesthesia [None]
  - Product substitution issue [None]
